FAERS Safety Report 7096572-1 (Version None)
Quarter: 2010Q4

REPORT INFORMATION
  Report Type: 
  Country: None (occurrence: None)
  Receive Date: 20101111
  Receipt Date: 20101104
  Transmission Date: 20110411
  Serious: Yes (Hospitalization)
  Sender: FDA-Public Use
  Company Number: B0683183A

PATIENT
  Age: 53 Year
  Sex: Male

DRUGS (4)
  1. FOSAMPRENAVIR [Suspect]
     Indication: HIV INFECTION
     Route: 048
  2. RETROVIR [Concomitant]
     Indication: HIV INFECTION
     Route: 048
  3. EPIVIR [Concomitant]
     Indication: HIV INFECTION
     Route: 048
  4. ISENTRESS [Concomitant]
     Indication: HIV INFECTION

REACTIONS (1)
  - HYPERLIPIDAEMIA [None]
